FAERS Safety Report 13340955 (Version 1)
Quarter: 2017Q1

REPORT INFORMATION
  Report Type: Spontaneous
  Country: US (occurrence: US)
  Receive Date: 20170315
  Receipt Date: 20170315
  Transmission Date: 20170428
  Serious: No
  Sender: FDA-Public Use
  Company Number: None

PATIENT
  Age: 85 Year
  Sex: Female

DRUGS (1)
  1. IBRANCE [Suspect]
     Active Substance: PALBOCICLIB
     Indication: BREAST CANCER
     Dosage: DAILY FOR 21 DAYS, 7 DAYS OFF
     Route: 048
     Dates: start: 20170217, end: 20170313

REACTIONS (2)
  - Rash [None]
  - Therapy cessation [None]

NARRATIVE: CASE EVENT DATE: 20170313
